APPROVED DRUG PRODUCT: GLOPERBA
Active Ingredient: COLCHICINE
Strength: 0.6MG/5ML
Dosage Form/Route: SOLUTION;ORAL
Application: N210942 | Product #001
Applicant: SCILEX PHARMACEUTICALS INC
Approved: Jan 30, 2019 | RLD: Yes | RS: Yes | Type: RX

PATENTS:
Patent 12274751 | Expires: Nov 22, 2036
Patent 12514819 | Expires: Nov 22, 2036
Patent 10383820 | Expires: Nov 22, 2036
Patent 10383821 | Expires: Nov 22, 2036
Patent 9907751 | Expires: Nov 22, 2036
Patent 10226423 | Expires: Dec 20, 2037